FAERS Safety Report 10364686 (Version 1)
Quarter: 2014Q3

REPORT INFORMATION
  Report Type: Spontaneous
  Country: AT (occurrence: AT)
  Receive Date: 20140806
  Receipt Date: 20140806
  Transmission Date: 20150326
  Serious: Yes (Other)
  Sender: FDA-Public Use
  Company Number: AT-ROCHE-1446036

PATIENT
  Age: 32 Year
  Sex: Female

DRUGS (3)
  1. CORTISON [Concomitant]
     Active Substance: CORTISONE ACETATE
  2. EUTHYROX [Concomitant]
     Active Substance: LEVOTHYROXINE SODIUM
     Route: 065
     Dates: start: 2011
  3. XOLAIR [Suspect]
     Active Substance: OMALIZUMAB
     Indication: CHRONIC SPONTANEOUS URTICARIA
     Route: 058
     Dates: start: 20140707, end: 20140707

REACTIONS (10)
  - Hypoaesthesia [Recovered/Resolved]
  - Malaise [Unknown]
  - Headache [Unknown]
  - Hyperhidrosis [Recovered/Resolved]
  - Rash [Recovering/Resolving]
  - Fatigue [Recovered/Resolved]
  - Urticaria [Recovering/Resolving]
  - Pruritus [Unknown]
  - Lip swelling [Not Recovered/Not Resolved]
  - Retching [Recovered/Resolved]

NARRATIVE: CASE EVENT DATE: 20140707
